FAERS Safety Report 8727119 (Version 7)
Quarter: 2013Q1

REPORT INFORMATION
  Report Type: Report from Study
  Country: SE (occurrence: SE)
  Receive Date: 20120816
  Receipt Date: 20130322
  Transmission Date: 20140127
  Serious: Yes (Hospitalization)
  Sender: FDA-Public Use
  Company Number: SE-ROCHE-1101914

PATIENT
  Age: 69 Year
  Sex: Female
  Weight: 60.7 kg

DRUGS (17)
  1. VEMURAFENIB [Suspect]
     Indication: MALIGNANT MELANOMA
     Dosage: LAST DOSE: 03 JAN 2012
     Route: 048
     Dates: start: 20110620
  2. VEMURAFENIB [Suspect]
     Dosage: DATE OF LAST DOSE PRIOR TO SAE- 25/MAY/2012
     Route: 048
     Dates: start: 20120104
  3. VEMURAFENIB [Suspect]
     Dosage: LAST DOSE 07 AUG 2012
     Route: 048
     Dates: start: 20120526, end: 20120808
  4. VEMURAFENIB [Suspect]
     Route: 048
     Dates: start: 20120822
  5. OXYNORM [Concomitant]
  6. PANODIL [Concomitant]
  7. ZOPICLONE [Concomitant]
  8. OMEPRAZOLE [Concomitant]
     Route: 065
     Dates: start: 2012
  9. IMODIUM [Concomitant]
     Route: 065
     Dates: start: 20120713
  10. BUDENOFALK [Concomitant]
  11. KALEORID [Concomitant]
  12. FURIX [Concomitant]
  13. LESTID [Concomitant]
  14. BETAPRED [Concomitant]
     Route: 065
     Dates: start: 20120322
  15. OXYCONTIN [Concomitant]
     Route: 065
     Dates: start: 20120101
  16. KODEIN [Concomitant]
     Route: 065
     Dates: start: 2012
  17. PRIMPERAN (SWEDEN) [Concomitant]
     Route: 065
     Dates: start: 2011

REACTIONS (1)
  - Vomiting [Recovered/Resolved]
